FAERS Safety Report 8582448-7 (Version None)
Quarter: 2012Q3

REPORT INFORMATION
  Report Type: 
  Country: None (occurrence: None)
  Receive Date: 20120809
  Receipt Date: 20120731
  Transmission Date: 20120928
  Serious: Yes (Hospitalization, Other)
  Sender: FDA-Public Use
  Company Number: US-ASTRAZENECA-2012SE54484

PATIENT
  Age: 50 Year
  Sex: Male

DRUGS (3)
  1. ASPIRIN [Concomitant]
  2. CRESTOR [Suspect]
     Route: 048
  3. NIASPAN [Concomitant]

REACTIONS (1)
  - ACCIDENT AT WORK [None]
